FAERS Safety Report 18361565 (Version 3)
Quarter: 2020Q4

REPORT INFORMATION
  Report Type: Report from Study
  Country: US (occurrence: US)
  Receive Date: 20201008
  Receipt Date: 20201119
  Transmission Date: 20210114
  Serious: Yes (Other)
  Sender: FDA-Public Use
  Company Number: US-PUMA BIOTECHNOLOGY, LTD.-2020US004243

PATIENT

DRUGS (8)
  1. OSCAL 500+D [Concomitant]
     Indication: PRODUCT USED FOR UNKNOWN INDICATION
     Dosage: 1 TABLET, BID WITH MEALS
     Route: 048
     Dates: start: 2020, end: 2020
  2. IMODIUM [Concomitant]
     Active Substance: LOPERAMIDE HYDROCHLORIDE
     Indication: PROPHYLAXIS AGAINST DIARRHOEA
     Dosage: 2 TABLETS (1 IN MORNING AND 1 IN EVENING)
  3. OSCAL 500+D [Concomitant]
     Dosage: 1 TABLET, DAILY WITH MEALS
     Route: 048
     Dates: start: 2020, end: 2020
  4. HYDROCHLOROTHIAZIDE. [Concomitant]
     Active Substance: HYDROCHLOROTHIAZIDE
     Indication: PRODUCT USED FOR UNKNOWN INDICATION
     Dosage: 1 TABLET, DAILY
     Route: 048
  5. VITAMINS NOS [Concomitant]
     Active Substance: VITAMINS
     Indication: PRODUCT USED FOR UNKNOWN INDICATION
     Dosage: 1 TABLET, DAILY
     Route: 048
  6. TYLENOL [Concomitant]
     Active Substance: ACETAMINOPHEN
     Indication: PAIN
  7. NERLYNX [Suspect]
     Active Substance: NERATINIB
     Indication: LUNG CANCER METASTATIC
     Dosage: 240 MG (6 PILLS), DAILY
     Route: 048
     Dates: start: 20200723
  8. TAGRISSO [Concomitant]
     Active Substance: OSIMERTINIB
     Indication: PRODUCT USED FOR UNKNOWN INDICATION
     Dosage: 80 MG
     Route: 065
     Dates: start: 202001, end: 202007

REACTIONS (10)
  - Neoplasm progression [Unknown]
  - Abdominal pain upper [Unknown]
  - Weight decreased [Not Recovered/Not Resolved]
  - Myopia [Unknown]
  - Diarrhoea [Not Recovered/Not Resolved]
  - Lung cancer metastatic [Unknown]
  - Pollakiuria [Recovering/Resolving]
  - Fatigue [Unknown]
  - Decreased appetite [Not Recovered/Not Resolved]
  - Off label use [Unknown]

NARRATIVE: CASE EVENT DATE: 2020
